FAERS Safety Report 7499426-1 (Version None)
Quarter: 2011Q2

REPORT INFORMATION
  Report Type: 
  Country: None (occurrence: None)
  Receive Date: 20110524
  Receipt Date: 20110511
  Transmission Date: 20111010
  Serious: Yes (Other)
  Sender: FDA-Public Use
  Company Number: PHHY2011BR41248

PATIENT
  Sex: Female

DRUGS (6)
  1. ZANIDIP [Concomitant]
     Dosage: 10 MG, UNK
  2. ATENOLOL [Concomitant]
  3. CLONIDINE HYDROCHLORIDE [Concomitant]
     Dosage: 0.200 MG, UNK
  4. CHLORTHALIDONE [Concomitant]
  5. SERTRALINE HYDROCHLORIDE [Concomitant]
     Dosage: 50 MG, UNK
  6. DIOVAN [Suspect]
     Dosage: 320 MG, UNK

REACTIONS (5)
  - NERVOUSNESS [None]
  - CEREBROVASCULAR ACCIDENT [None]
  - OEDEMA PERIPHERAL [None]
  - AGITATION [None]
  - DEPRESSION [None]
